FAERS Safety Report 9290675 (Version 2)
Quarter: 2013Q2

REPORT INFORMATION
  Report Type: Report from Study
  Country: DE (occurrence: DE)
  Receive Date: 20130515
  Receipt Date: 20130521
  Transmission Date: 20140414
  Serious: Yes (Hospitalization, Other)
  Sender: FDA-Public Use
  Company Number: DE-PFIZER INC-2013143894

PATIENT
  Age: 38 Year
  Sex: Female

DRUGS (1)
  1. IBUPROFEN [Suspect]
     Indication: ARTHRALGIA
     Dosage: 600 MG BS (BEFORE START OF THE RACE)

REACTIONS (7)
  - Renal failure [Unknown]
  - Haematuria [Recovered/Resolved]
  - Anuria [Not Recovered/Not Resolved]
  - Oliguria [Not Recovered/Not Resolved]
  - Hyperkalaemia [Recovered/Resolved]
  - Proteinuria [Recovered/Resolved]
  - Dyspnoea [Recovered/Resolved]
